FAERS Safety Report 5651873-6 (Version None)
Quarter: 2008Q1

REPORT INFORMATION
  Report Type: 
  Country: None (occurrence: None)
  Receive Date: 20080305
  Receipt Date: 20080225
  Transmission Date: 20080703
  Serious: Yes (Other)
  Sender: FDA-Public Use
  Company Number: US-PFIZER INC-2005058966

PATIENT
  Sex: Female
  Weight: 77.1 kg

DRUGS (4)
  1. BEXTRA [Suspect]
     Indication: PAIN
     Dates: start: 20050407, end: 20050407
  2. BEXTRA [Suspect]
     Indication: SWELLING
  3. BEXTRA [Suspect]
     Indication: NEUROMA
  4. PREMARIN [Concomitant]

REACTIONS (8)
  - AGEUSIA [None]
  - DEHYDRATION [None]
  - DYSGEUSIA [None]
  - LIP SWELLING [None]
  - OEDEMA MOUTH [None]
  - PRURITUS GENERALISED [None]
  - RASH ERYTHEMATOUS [None]
  - SKIN DISORDER [None]
